FAERS Safety Report 5411139-6 (Version None)
Quarter: 2007Q3

REPORT INFORMATION
  Report Type: 
  Country: None (occurrence: None)
  Receive Date: 20070810
  Receipt Date: 20070730
  Transmission Date: 20080115
  Serious: Yes (Other)
  Sender: FDA-Public Use
  Company Number: FR-AMGEN-UK236881

PATIENT

DRUGS (3)
  1. FILGRASTIM [Suspect]
     Indication: PRE-EXISTING DISEASE
  2. DARBEPOETIN ALFA [Suspect]
     Indication: PRE-EXISTING DISEASE
  3. PEGFILGRASTIM [Suspect]
     Indication: PRE-EXISTING DISEASE

REACTIONS (1)
  - APLASIA PURE RED CELL [None]
